FAERS Safety Report 8223656-4 (Version None)
Quarter: 2012Q1

REPORT INFORMATION
  Report Type: 
  Country: None (occurrence: None)
  Receive Date: 20120316
  Receipt Date: 20120305
  Transmission Date: 20120608
  Serious: Yes (Death)
  Sender: FDA-Public Use
  Company Number: FK201200705

PATIENT
  Age: 75 Year
  Sex: Male

DRUGS (2)
  1. HEPARIN [Suspect]
     Indication: THROMBECTOMY
     Dosage: 8000 UNITS INTRAOPERATIVE,  6800 INTRAOPERATIVE
  2. HEPARIN [Suspect]
     Indication: ANEURYSM REPAIR
     Dosage: 8000 UNITS INTRAOPERATIVE,  6800 INTRAOPERATIVE

REACTIONS (4)
  - GANGRENE [None]
  - THROMBOSIS [None]
  - HEPARIN-INDUCED THROMBOCYTOPENIA [None]
  - GRAFT INFECTION [None]
